FAERS Safety Report 7969519-0 (Version None)
Quarter: 2011Q4

REPORT INFORMATION
  Report Type: 
  Country: None (occurrence: None)
  Receive Date: 20111212
  Receipt Date: 20111204
  Transmission Date: 20120403
  Serious: Yes (Other)
  Sender: FDA-Public Use
  Company Number: NL-ACCORD-011581

PATIENT
  Sex: Female

DRUGS (1)
  1. ANASTROZOLE [Suspect]

REACTIONS (4)
  - APHONIA [None]
  - GLOSSODYNIA [None]
  - AGEUSIA [None]
  - OROPHARYNGEAL PAIN [None]
